FAERS Safety Report 9303302 (Version 6)
Quarter: 2014Q1

REPORT INFORMATION
  Report Type: Report from Study
  Country: JP (occurrence: JP)
  Receive Date: 20130522
  Receipt Date: 20140114
  Transmission Date: 20141002
  Serious: Yes (Hospitalization)
  Sender: FDA-Public Use
  Company Number: JP-009507513-1305JPN012596

PATIENT
  Age: 60 Year
  Sex: Female

DRUGS (17)
  1. PEGINTERFERON ALFA-2B [Suspect]
     Indication: CHRONIC HEPATITIS C
     Dosage: 100 MICROGRAM, QW
     Route: 058
     Dates: start: 20130314
  2. PEGINTERFERON ALFA-2B [Suspect]
     Dosage: 50 MICROGRAM, QW
     Route: 058
     Dates: start: 20130321
  3. PEGINTERFERON ALFA-2B [Suspect]
     Dosage: 100 MICROGRAM, QW
     Route: 058
     Dates: start: 20130328
  4. REBETOL [Suspect]
     Indication: CHRONIC HEPATITIS C
     Dosage: 800 MG, QD
     Route: 048
     Dates: start: 20130314
  5. TELAPREVIR [Suspect]
     Indication: CHRONIC HEPATITIS C
     Dosage: 2250 MG, DAILY
     Route: 048
     Dates: start: 20130314
  6. LOXOPROFEN SODIUM [Concomitant]
     Dosage: UNK
  7. ZOPICLONE [Concomitant]
     Dosage: UNK
  8. DOMPERIDONE [Concomitant]
     Dosage: UNK
  9. SENNA [Concomitant]
     Dosage: UNK
  10. FEXOFENADINE HYDROCHLORIDE [Concomitant]
     Dosage: UNK
  11. BETAMETHASONE BUTYRATE PROPIONATE [Concomitant]
     Dosage: UNK
  12. HEPARINOID [Concomitant]
     Dosage: UNK
  13. PREDNISOLONE ACETATE [Concomitant]
     Dosage: UNK
  14. OMEPRAZOLE [Concomitant]
     Dosage: UNK
  15. HYDROCORTISONE BUTYRATE [Concomitant]
     Dosage: UNK
  16. BENZALKONIUM CHLORIDE [Concomitant]
     Dosage: UNK
  17. PETROLATUM [Concomitant]
     Dosage: UNK

REACTIONS (3)
  - Rash [Recovered/Resolved]
  - Rash [Unknown]
  - Insomnia [Unknown]
